FAERS Safety Report 7668742-2 (Version None)
Quarter: 2011Q3

REPORT INFORMATION
  Report Type: 
  Country: None (occurrence: None)
  Receive Date: 20110803
  Receipt Date: 20110630
  Transmission Date: 20111222
  Serious: Yes (Hospitalization, Other)
  Sender: FDA-Public Use
  Company Number: FR-ACCORD-009281

PATIENT
  Age: 55 Year
  Sex: Male

DRUGS (3)
  1. CISPLATIN [Suspect]
     Indication: HEAD AND NECK CANCER
  2. DOCETAXEL [Suspect]
     Indication: HEAD AND NECK CANCER
  3. FLUOROURACIL [Suspect]
     Indication: HEAD AND NECK CANCER

REACTIONS (10)
  - NEUTROPENIC SEPSIS [None]
  - OFF LABEL USE [None]
  - SKIN TOXICITY [None]
  - METABOLIC ENCEPHALOPATHY [None]
  - CONVULSION [None]
  - MUCOSAL INFLAMMATION [None]
  - LOSS OF CONSCIOUSNESS [None]
  - HAEMATOTOXICITY [None]
  - NEUROTOXICITY [None]
  - INCORRECT DRUG ADMINISTRATION DURATION [None]
